FAERS Safety Report 4342115-2 (Version None)
Quarter: 2004Q1

REPORT INFORMATION
  Report Type: 
  Country: None (occurrence: None)
  Receive Date: 20040329
  Receipt Date: 20040116
  Transmission Date: 20041129
  Serious: No
  Sender: FDA-Public Use
  Company Number: 04P-163-0247500-00

PATIENT
  Age: 58 Year
  Sex: Female
  Weight: 83.4619 kg

DRUGS (11)
  1. HUMIRA [Suspect]
     Indication: RHEUMATOID ARTHRITIS
     Dosage: 40 MG, 1 IN 2 WK, SUBCUTANEOUS
     Route: 058
     Dates: start: 20031101
  2. BUCINDOLOL HYDROCHLORIDE [Concomitant]
  3. FOLIC ACID [Concomitant]
  4. POTASSIUM CHLORIDE [Concomitant]
  5. HYDROCHLOROTHIAZIDE [Concomitant]
  6. PREDNISONE [Concomitant]
  7. METHOTREXATE [Concomitant]
  8. FLUVASTATIN SODIUM [Concomitant]
  9. LEXAPRO [Concomitant]
  10. ASPIRIN WITH CALCIUM [Concomitant]
  11. OXYCOCET [Concomitant]

REACTIONS (1)
  - UNDERDOSE [None]
